FAERS Safety Report 13440345 (Version 2)
Quarter: 2019Q2

REPORT INFORMATION
  Report Type: Report from Study
  Country: IT (occurrence: IT)
  Receive Date: 20170413
  Receipt Date: 20190621
  Transmission Date: 20190711
  Serious: Yes (Death)
  Sender: FDA-Public Use
  Company Number: IT-AMGEN-ITANI2017001844

PATIENT
  Age: 81 Year
  Sex: Female
  Weight: 47 kg

DRUGS (1)
  1. PANITUMUMAB [Suspect]
     Active Substance: PANITUMUMAB
     Indication: COLORECTAL CANCER
     Dosage: 280 MILLIGRAM, QWK
     Route: 042
     Dates: start: 20161024

REACTIONS (7)
  - Stomatitis [Fatal]
  - Rash [Fatal]
  - Anaemia [Fatal]
  - Neutropenia [Fatal]
  - Paronychia [Recovered/Resolved]
  - Myocardial infarction [Fatal]
  - Hypomagnesaemia [Fatal]

NARRATIVE: CASE EVENT DATE: 20161107
